FAERS Safety Report 16751716 (Version 1)
Quarter: 2019Q3

REPORT INFORMATION
  Report Type: Spontaneous
  Country: CA (occurrence: CA)
  Receive Date: 20190828
  Receipt Date: 20190828
  Transmission Date: 20191005
  Serious: Yes (Hospitalization)
  Sender: FDA-Public Use
  Company Number: CA-TEVA-2019-CA-1099361

PATIENT
  Age: 23 Year
  Sex: Female

DRUGS (19)
  1. FENTANYL. [Concomitant]
     Active Substance: FENTANYL
     Indication: SEDATION
  2. PREDNISONE. [Concomitant]
     Active Substance: PREDNISONE
  3. PREDNISONE. [Concomitant]
     Active Substance: PREDNISONE
  4. MESALAZINE [Concomitant]
     Active Substance: MESALAMINE
  5. PENTASA [Concomitant]
     Active Substance: MESALAMINE
  6. PREDNISONE. [Concomitant]
     Active Substance: PREDNISONE
  7. PREDNISONE. [Concomitant]
     Active Substance: PREDNISONE
  8. AZATHIOPRINE. [Concomitant]
     Active Substance: AZATHIOPRINE
     Dosage: 150 MILLIGRAM DAILY;
  9. MESALAZINE [Concomitant]
     Active Substance: MESALAMINE
     Dosage: 6 DOSAGE FORMS DAILY;
     Route: 048
  10. MIDAZOLAM HYDROCHLORIDE. [Concomitant]
     Active Substance: MIDAZOLAM HYDROCHLORIDE
     Indication: SEDATION
  11. PREDNISONE. [Concomitant]
     Active Substance: PREDNISONE
  12. AZATHIOPRINE. [Concomitant]
     Active Substance: AZATHIOPRINE
     Dosage: 3 DOSAGE FORMS DAILY;
  13. IRON SUCROSE [Concomitant]
     Active Substance: IRON SUCROSE
  14. 5-ASA [Concomitant]
     Active Substance: MESALAMINE
  15. PREDNISONE. [Concomitant]
     Active Substance: PREDNISONE
  16. PREDNISONE. [Concomitant]
     Active Substance: PREDNISONE
  17. ETHINYLESTRADIOL W/LEVONORGESTREL [Suspect]
     Active Substance: ETHINYL ESTRADIOL\LEVONORGESTREL
     Indication: CONTRACEPTION
     Dosage: 1 DOSAGE FORMS DAILY;
     Route: 065
  18. MESALAZINE [Concomitant]
     Active Substance: MESALAMINE
     Dosage: 4.8 GRAM DAILY;
     Route: 048
  19. SPIRONOLACTONE. [Concomitant]
     Active Substance: SPIRONOLACTONE
     Dosage: 4 DOSAGE FORMS DAILY;
     Route: 048

REACTIONS (2)
  - Fatigue [Recovering/Resolving]
  - Condition aggravated [Recovering/Resolving]
